FAERS Safety Report 7489878-5 (Version None)
Quarter: 2011Q2

REPORT INFORMATION
  Report Type: 
  Country: None (occurrence: None)
  Receive Date: 20110511
  Receipt Date: 20110427
  Transmission Date: 20111010
  Serious: Yes (Other)
  Sender: FDA-Public Use
  Company Number: 2011P1004749

PATIENT
  Age: 48 Year
  Sex: Male
  Weight: 82.5547 kg

DRUGS (8)
  1. PEXEVA [Concomitant]
  2. KLONOPIN (CLUNAZEPAM) [Concomitant]
  3. MS CONTIN [Concomitant]
  4. NORCO [Concomitant]
  5. BUSPAR [Concomitant]
  6. FENTANYL [Suspect]
     Indication: NECK PAIN
     Dosage: 1 PATCH;Q3D;TDER
     Route: 062
     Dates: start: 20101126, end: 20101207
  7. FENTANYL [Suspect]
     Indication: MIGRAINE
     Dosage: 1 PATCH;Q3D;TDER
     Route: 062
     Dates: start: 20101126, end: 20101207
  8. FENTANYL [Suspect]
     Indication: PAIN
     Dosage: 1 PATCH;Q3D;TDER
     Route: 062
     Dates: start: 20101126, end: 20101207

REACTIONS (3)
  - DRUG INEFFECTIVE [None]
  - DYSPNOEA [None]
  - LUNG DISORDER [None]
